FAERS Safety Report 8451834-8 (Version None)
Quarter: 2012Q2

REPORT INFORMATION
  Report Type: 
  Country: None (occurrence: None)
  Receive Date: 20120620
  Receipt Date: 20120320
  Transmission Date: 20120825
  Serious: No
  Sender: FDA-Public Use
  Company Number: US-VERTEX PHARMACEUTICALS INC.-AE-2012-004046

PATIENT
  Sex: Female
  Weight: 84.898 kg

DRUGS (6)
  1. INCIVEK [Suspect]
     Route: 048
     Dates: start: 20120320
  2. INCIVEK [Suspect]
     Indication: HEPATITIS C
     Route: 048
     Dates: start: 20120114, end: 20120319
  3. RIBASPHERE [Concomitant]
     Dates: start: 20120320
  4. RIBASPHERE [Concomitant]
     Indication: HEPATITIS C
     Dates: start: 20120114, end: 20120319
  5. PEGASYS [Concomitant]
     Indication: HEPATITIS C
     Dates: start: 20120114, end: 20120319
  6. PEGASYS [Concomitant]
     Dates: start: 20120320

REACTIONS (9)
  - MALAISE [None]
  - DRUG DOSE OMISSION [None]
  - POLLAKIURIA [None]
  - INFLUENZA LIKE ILLNESS [None]
  - FATIGUE [None]
  - ULCER [None]
  - BONE PAIN [None]
  - PRURITUS GENERALISED [None]
  - RASH [None]
